FAERS Safety Report 5900643-X (Version None)
Quarter: 2008Q3

REPORT INFORMATION
  Report Type: 
  Country: None (occurrence: None)
  Receive Date: 20080926
  Receipt Date: 20080915
  Transmission Date: 20090109
  Serious: Yes (Hospitalization)
  Sender: FDA-Public Use
  Company Number: GR-PFIZER INC-2008078625

PATIENT
  Sex: Female

DRUGS (3)
  1. LYRICA [Suspect]
     Indication: DIABETIC NEUROPATHY
     Dates: start: 20080601, end: 20080101
  2. LYRICA [Suspect]
     Indication: SCIATICA
  3. ANTIHYPERTENSIVES [Concomitant]

REACTIONS (2)
  - AGGRESSION [None]
  - PSYCHOTIC DISORDER [None]
